FAERS Safety Report 6723884-0 (Version None)
Quarter: 2010Q2

REPORT INFORMATION
  Report Type: 
  Country: None (occurrence: None)
  Receive Date: 20100513
  Receipt Date: 20100305
  Transmission Date: 20101027
  Serious: Yes (Hospitalization)
  Sender: FDA-Public Use
  Company Number: GB-ROCHE-660506

PATIENT
  Sex: Female
  Weight: 46.7 kg

DRUGS (4)
  1. TOCILIZUMAB [Suspect]
     Indication: RHEUMATOID ARTHRITIS
     Dosage: FORM: INFUSION, LAST DOSE PRIOR TO SAE: 08 SEPTEMBER 2009, TEMPORARILY INTERRUPTED.
     Route: 042
     Dates: start: 20090806, end: 20090908
  2. TRAMADOL HCL [Concomitant]
     Dates: start: 20090925
  3. PARACETAMOL [Concomitant]
     Dates: start: 20080401
  4. ETORICOXIB [Concomitant]
     Dosage: DRUG: ETORACOXIB.
     Dates: start: 20090721

REACTIONS (10)
  - CELLULITIS [None]
  - CYST RUPTURE [None]
  - EXTRAVASATION [None]
  - FALL [None]
  - HYPERKERATOSIS [None]
  - LEUKOCYTOCLASTIC VASCULITIS [None]
  - LOWER LIMB FRACTURE [None]
  - RHEUMATOID VASCULITIS [None]
  - SKIN OEDEMA [None]
  - ULCER [None]
